FAERS Safety Report 6572186-4 (Version None)
Quarter: 2010Q1

REPORT INFORMATION
  Report Type: 
  Country: None (occurrence: None)
  Receive Date: 20100205
  Receipt Date: 20100127
  Transmission Date: 20100710
  Serious: Yes (Other)
  Sender: FDA-Public Use
  Company Number: D0065663A

PATIENT
  Age: 51 Year
  Sex: Male

DRUGS (4)
  1. ATMADISC [Suspect]
     Dosage: 300MCG TWICE PER DAY
     Route: 055
     Dates: start: 20091113, end: 20091114
  2. RASILEZ [Concomitant]
     Dosage: 150MG PER DAY
     Route: 048
  3. ALLOPURINOL [Concomitant]
     Dosage: 100MG PER DAY
     Route: 048
  4. CODIPERTUSSIN [Concomitant]
     Route: 048

REACTIONS (3)
  - ARTHRALGIA [None]
  - BACK PAIN [None]
  - RENAL PAIN [None]
